FAERS Safety Report 15116765 (Version 1)
Quarter: 2018Q3

REPORT INFORMATION
  Report Type: Spontaneous
  Country: IT (occurrence: IT)
  Receive Date: 20180706
  Receipt Date: 20180706
  Transmission Date: 20181010
  Serious: Yes (Hospitalization, Other)
  Sender: FDA-Public Use
  Company Number: IT-MYLANLABS-2018M1047312

PATIENT
  Age: 8 Year
  Sex: Male

DRUGS (4)
  1. SALMETEROL [Suspect]
     Active Substance: SALMETEROL
     Indication: ASTHMA
     Dosage: 100 MICROGRAM/DAY
  2. FLUTICASONE. [Suspect]
     Active Substance: FLUTICASONE
     Indication: ASTHMA
     Dosage: 1000 MICROGRAM, QD
  3. MONTELUKAST [Suspect]
     Active Substance: MONTELUKAST SODIUM
     Dosage: 10 MG/DAY
     Route: 048
  4. MONTELUKAST [Suspect]
     Active Substance: MONTELUKAST SODIUM
     Indication: ASTHMA
     Dosage: 5 MG/DAY
     Route: 048

REACTIONS (2)
  - Drug ineffective [Unknown]
  - No adverse event [Unknown]
